FAERS Safety Report 6721552-2 (Version None)
Quarter: 2010Q2

REPORT INFORMATION
  Report Type: 
  Country: None (occurrence: None)
  Receive Date: 20100510
  Receipt Date: 20100425
  Transmission Date: 20101027
  Serious: Yes (Other)
  Sender: FDA-Public Use
  Company Number: CAO10000330

PATIENT
  Sex: Female

DRUGS (1)
  1. CREST WHITENING PLUS SCOPE TOOTHPASTE, MINTY FRESH FLAVOR (SODIUM ACID [Suspect]
     Dosage: 1 APPLIC, 1 ONLY, INTRAORAL
     Route: 011
     Dates: start: 20100309, end: 20100309

REACTIONS (5)
  - ANAPHYLACTIC SHOCK [None]
  - LIP SWELLING [None]
  - OEDEMA MOUTH [None]
  - PHARYNGEAL OEDEMA [None]
  - SWOLLEN TONGUE [None]
